FAERS Safety Report 5324784-3 (Version None)
Quarter: 2007Q2

REPORT INFORMATION
  Report Type: 
  Country: None (occurrence: None)
  Receive Date: 20070515
  Receipt Date: 20070504
  Transmission Date: 20071010
  Serious: Yes (Other)
  Sender: FDA-Public Use
  Company Number: PHHO2007VE01808

PATIENT
  Age: 50 Year
  Sex: Male

DRUGS (3)
  1. ZELMAC / HTF 919A [Suspect]
     Dosage: 6 MG, BID
     Route: 048
     Dates: start: 20061001, end: 20070101
  2. MINERAL OIL EMULSION [Concomitant]
  3. VITAMIN CAP [Concomitant]

REACTIONS (4)
  - ANAL FISTULA [None]
  - FLATULENCE [None]
  - SURGERY [None]
  - YELLOW SKIN [None]
